FAERS Safety Report 21705292 (Version 2)
Quarter: 2022Q4

REPORT INFORMATION
  Report Type: Spontaneous
  Country: SA (occurrence: SA)
  Receive Date: 20221209
  Receipt Date: 20221213
  Transmission Date: 20230112
  Serious: Yes (Life-Threatening, Hospitalization, Other)
  Sender: FDA-Public Use
  Company Number: SA-GILEAD-2022-0606859

PATIENT
  Age: 21 Month
  Sex: Male

DRUGS (2)
  1. AMPHOTERICIN B [Suspect]
     Active Substance: AMPHOTERICIN B
     Indication: Candida infection
     Route: 042
     Dates: start: 202207, end: 202211
  2. CASPOFUNGIN [Concomitant]
     Active Substance: CASPOFUNGIN
     Indication: Candida infection
     Dosage: UNK UNK, UNKNOWN FREQ.
     Route: 042
     Dates: end: 202211

REACTIONS (2)
  - Arrhythmia [Unknown]
  - Hypokalaemia [Unknown]
